FAERS Safety Report 11802819 (Version 1)
Quarter: 2015Q4

REPORT INFORMATION
  Report Type: Spontaneous
  Country: US (occurrence: US)
  Receive Date: 20151204
  Receipt Date: 20151204
  Transmission Date: 20160305
  Serious: No
  Sender: FDA-Public Use
  Company Number: US-BEH-2015052368

PATIENT
  Sex: Female
  Weight: 72 kg

DRUGS (7)
  1. CAMILA [Concomitant]
     Active Substance: NORETHINDRONE
  2. EPIPEN [Concomitant]
     Active Substance: EPINEPHRINE
  3. PRENATAL [Concomitant]
     Active Substance: VITAMINS
  4. BERINERT [Suspect]
     Active Substance: HUMAN C1-ESTERASE INHIBITOR
     Indication: HEREDITARY ANGIOEDEMA
  5. SODIUM CHLORIDE. [Concomitant]
     Active Substance: SODIUM CHLORIDE
  6. ZOFRAN [Concomitant]
     Active Substance: ONDANSETRON HYDROCHLORIDE
  7. HEPARIN [Concomitant]
     Active Substance: HEPARIN SODIUM

REACTIONS (1)
  - Exposure during pregnancy [Recovered/Resolved]
